FAERS Safety Report 4632637-9 (Version None)
Quarter: 2005Q2

REPORT INFORMATION
  Report Type: 
  Country: None (occurrence: None)
  Receive Date: 20050331
  Receipt Date: 20040825
  Transmission Date: 20051028
  Serious: Yes (Other)
  Sender: FDA-Public Use
  Company Number: 200414182BCC

PATIENT
  Age: 84 Year
  Sex: Female
  Weight: 38.5557 kg

DRUGS (9)
  1. ALEVE [Suspect]
     Indication: ARTHRALGIA
     Dosage: 220 MG, QD, ORAL
     Route: 048
     Dates: start: 20040823, end: 20040826
  2. HUMULIN N [Concomitant]
  3. HUMULIN R [Concomitant]
  4. LASIX [Concomitant]
  5. POTASSIUM CHLORIDE [Concomitant]
  6. ISOSORBIDE [Concomitant]
  7. ALTACE [Concomitant]
  8. DIGITEK [Concomitant]
  9. SYNTHROID [Concomitant]

REACTIONS (5)
  - BLOOD GLUCOSE DECREASED [None]
  - BLOOD GLUCOSE INCREASED [None]
  - DIFFICULTY IN WALKING [None]
  - DIZZINESS [None]
  - FEELING ABNORMAL [None]
